FAERS Safety Report 6179045-X (Version None)
Quarter: 2009Q2

REPORT INFORMATION
  Report Type: 
  Country: None (occurrence: None)
  Receive Date: 20090505
  Receipt Date: 20081205
  Transmission Date: 20091009
  Serious: No
  Sender: FDA-Public Use
  Company Number: US-KINGPHARMUSA00001-K200801385

PATIENT
  Sex: Male

DRUGS (1)
  1. PRALIDOXIME CHLORIDE AUTO-INJECTOR\R\N\R\N [Suspect]

REACTIONS (2)
  - ACCIDENTAL EXPOSURE [None]
  - EXPIRED DRUG ADMINISTERED [None]
